FAERS Safety Report 13100045 (Version 3)
Quarter: 2017Q1

REPORT INFORMATION
  Report Type: Report from Study
  Country: US (occurrence: US)
  Receive Date: 20170110
  Receipt Date: 20170120
  Transmission Date: 20170428
  Serious: Yes (Hospitalization)
  Sender: FDA-Public Use
  Company Number: US-TAIHO ONCOLOGY INC-EU-2016-03314

PATIENT
  Age: 66 Year
  Sex: Male

DRUGS (9)
  1. LONSURF [Suspect]
     Active Substance: TIPIRACIL HYDROCHLORIDE\TRIFLURIDINE
     Indication: COLON CANCER
     Route: 048
     Dates: start: 20161224, end: 20161227
  2. METOPROLOL. [Concomitant]
     Active Substance: METOPROLOL
     Dosage: NI
  3. PRAVASTATIN. [Concomitant]
     Active Substance: PRAVASTATIN
     Dosage: NI
  4. TEMAZEPAM. [Concomitant]
     Active Substance: TEMAZEPAM
     Dosage: NI
  5. TYLENOL 8HR [Concomitant]
     Active Substance: ACETAMINOPHEN
     Dosage: NI
  6. AMLODIPINE [Concomitant]
     Active Substance: AMLODIPINE BESYLATE
     Dosage: NI
  7. BENAZEPRIL [Concomitant]
     Active Substance: BENAZEPRIL HYDROCHLORIDE
     Dosage: NI
  8. LORAZEPAM. [Concomitant]
     Active Substance: LORAZEPAM
     Dosage: NI
  9. WARFARIN [Concomitant]
     Active Substance: WARFARIN
     Dosage: NI

REACTIONS (3)
  - Abdominal pain [Unknown]
  - Abdominal pain upper [Unknown]
  - Rectal haemorrhage [Unknown]

NARRATIVE: CASE EVENT DATE: 20161227
